FAERS Safety Report 13704979 (Version 1)
Quarter: 2017Q2

REPORT INFORMATION
  Report Type: Spontaneous
  Country: US (occurrence: US)
  Receive Date: 20170629
  Receipt Date: 20170629
  Transmission Date: 20170830
  Serious: Yes (Other)
  Sender: FDA-Public Use
  Company Number: None

PATIENT
  Age: 37 Year
  Sex: Female
  Weight: 90 kg

DRUGS (1)
  1. ESTRADIOL TRANSDERMAL SYSTEM [Suspect]
     Active Substance: ESTRADIOL
     Indication: ARTIFICIAL MENOPAUSE
     Dosage: ?          OTHER STRENGTH:MG;QUANTITY:1 PATCH(ES);OTHER FREQUENCY:BI-WEEKLY;?
     Route: 062
     Dates: start: 20170401, end: 20170629

REACTIONS (5)
  - Application site pruritus [None]
  - Application site irritation [None]
  - Nausea [None]
  - Application site burn [None]
  - Application site erythema [None]

NARRATIVE: CASE EVENT DATE: 20170629
